FAERS Safety Report 16346312 (Version 3)
Quarter: 2020Q2

REPORT INFORMATION
  Report Type: Spontaneous
  Country: US (occurrence: US)
  Receive Date: 20190523
  Receipt Date: 20200611
  Transmission Date: 20200713
  Serious: No
  Sender: FDA-Public Use
  Company Number: US-PFIZER INC-2019093823

PATIENT
  Age: 77 Year
  Sex: Male

DRUGS (5)
  1. DETROL LA [Suspect]
     Active Substance: TOLTERODINE TARTRATE
     Dosage: 4 MG, UNK (2 OF THE 2MG)
  2. DETROL LA [Suspect]
     Active Substance: TOLTERODINE TARTRATE
     Dosage: UNK, (QUANTITY FOR 90 DAYS: 90 3 RF)
  3. DETROL LA [Suspect]
     Active Substance: TOLTERODINE TARTRATE
     Dosage: UNK, (QUANTITY FOR 90 DAYS: 90 3 RF)
  4. DETROL LA [Suspect]
     Active Substance: TOLTERODINE TARTRATE
     Dosage: 4 MG, UNK
  5. DETROL LA [Suspect]
     Active Substance: TOLTERODINE TARTRATE
     Dosage: 6 MG, DAILY (TAKING A NUMBER 4(MG) AND A NUMBER 2(MG)) (I^M TAKING 3)

REACTIONS (4)
  - Disturbance in attention [Unknown]
  - Pain [Unknown]
  - Product use issue [Unknown]
  - Off label use [Unknown]
